FAERS Safety Report 9346841 (Version 2)
Quarter: 2013Q3

REPORT INFORMATION
  Report Type: Spontaneous
  Country: US (occurrence: US)
  Receive Date: 20130613
  Receipt Date: 20130716
  Transmission Date: 20140515
  Serious: No
  Sender: FDA-Public Use
  Company Number: US-009507513-1306USA004833

PATIENT
  Age: 29 Year
  Sex: Female
  Weight: 54.42 kg

DRUGS (2)
  1. SAPHRIS [Suspect]
     Indication: BIPOLAR DISORDER
     Dosage: 1 TABLET AT BED
     Route: 048
     Dates: start: 20130320, end: 20130607
  2. SAPHRIS [Suspect]
     Dosage: 2.5MG AT BED
     Route: 048
     Dates: start: 20130607

REACTIONS (4)
  - Constipation [Recovering/Resolving]
  - Weight increased [Recovering/Resolving]
  - Incorrect route of drug administration [Unknown]
  - Wrong technique in drug usage process [Unknown]
